FAERS Safety Report 23995499 (Version 4)
Quarter: 2024Q4

REPORT INFORMATION
  Report Type: Spontaneous
  Country: JP (occurrence: JP)
  Receive Date: 20240620
  Receipt Date: 20241104
  Transmission Date: 20250115
  Serious: No
  Sender: AMERICAN REGENT
  Company Number: JP-AMERICAN REGENT INC-2024002316

PATIENT
  Age: 49 Year
  Sex: Female

DRUGS (1)
  1. FERINJECT [Suspect]
     Active Substance: FERRIC CARBOXYMALTOSE
     Indication: Iron deficiency anaemia
     Dosage: 500 MG DILUTED 100ML OF 0.9% NACL (500 MG)
     Dates: start: 20240528, end: 20240528

REACTIONS (4)
  - Pharyngitis [Recovering/Resolving]
  - Feeling abnormal [Unknown]
  - Pyrexia [Unknown]
  - Infusion site discolouration [Recovering/Resolving]

NARRATIVE: CASE EVENT DATE: 20240529
